FAERS Safety Report 8585630 (Version 8)
Quarter: 2013Q4

REPORT INFORMATION
  Report Type: Spontaneous
  Country: US (occurrence: US)
  Receive Date: 20120530
  Receipt Date: 20131217
  Transmission Date: 20140711
  Serious: Yes (Hospitalization, Other)
  Sender: FDA-Public Use
  Company Number: US-GLAXOSMITHKLINE-A0943766A

PATIENT
  Age: 37 Year
  Sex: Female
  Weight: 157 kg

DRUGS (5)
  1. FLOLAN [Suspect]
     Indication: PULMONARY ARTERIAL HYPERTENSION
     Dosage: 40NGKM CONTINUOUS
     Route: 042
     Dates: start: 20050222
  2. REVATIO [Suspect]
     Indication: PRODUCT USED FOR UNKNOWN INDICATION
     Route: 065
  3. LETAIRIS [Suspect]
     Indication: PRODUCT USED FOR UNKNOWN INDICATION
     Route: 065
  4. LASIX [Concomitant]
     Indication: PRODUCT USED FOR UNKNOWN INDICATION
     Dosage: 20MG PER DAY
     Route: 065
  5. IMODIUM [Concomitant]
     Dosage: 2MG AS REQUIRED
     Route: 065

REACTIONS (16)
  - Pulmonary arterial hypertension [Unknown]
  - Ascites [Not Recovered/Not Resolved]
  - Pain in jaw [Not Recovered/Not Resolved]
  - Erythema [Not Recovered/Not Resolved]
  - Flushing [Unknown]
  - Diarrhoea [Unknown]
  - Abdominal distension [Unknown]
  - Gastrointestinal disorder [Unknown]
  - Fluid retention [Unknown]
  - Rash [Not Recovered/Not Resolved]
  - Rash pruritic [Unknown]
  - Dermatitis contact [Unknown]
  - Urticaria [Unknown]
  - Infertility female [Unknown]
  - Oedema [Unknown]
  - Local swelling [Unknown]
